FAERS Safety Report 9655976 (Version 2)
Quarter: 2013Q4

REPORT INFORMATION
  Report Type: Spontaneous
  Country: US (occurrence: US)
  Receive Date: 20131030
  Receipt Date: 20131112
  Transmission Date: 20140711
  Serious: Yes (Hospitalization)
  Sender: FDA-Public Use
  Company Number: US-BAYER-2013-129991

PATIENT
  Age: 36 Year
  Sex: Female
  Weight: 75 kg

DRUGS (7)
  1. YASMIN [Suspect]
     Route: 048
  2. PAROXETINE HYDROCHLORIDE [Concomitant]
     Dosage: 20 MG, UNK
     Dates: start: 20050526, end: 20060606
  3. AZITHROMYCIN [Concomitant]
     Dosage: 250 MG, UNK
     Dates: start: 20051223
  4. PREDNISONE [Concomitant]
     Dosage: 20 MG, UNK
     Dates: start: 20051223
  5. ALBUTEROL [Concomitant]
     Dosage: 90 MCG/24HR, UNK
     Dates: start: 20051223
  6. PAXIL [Concomitant]
  7. SINGULAIR [Concomitant]

REACTIONS (1)
  - Pulmonary embolism [None]
